FAERS Safety Report 22936666 (Version 2)
Quarter: 2024Q1

REPORT INFORMATION
  Report Type: Spontaneous
  Country: BE (occurrence: BE)
  Receive Date: 20230912
  Receipt Date: 20240111
  Transmission Date: 20240409
  Serious: Yes (Other)
  Sender: FDA-Public Use
  Company Number: BE-PFIZER INC-PV202300152055

PATIENT
  Age: 48 Year
  Sex: Male

DRUGS (2)
  1. CARBOPLATIN [Suspect]
     Active Substance: CARBOPLATIN
     Indication: Astrocytoma
     Dosage: UNK, CYCLIC
     Dates: start: 20210601, end: 202311
  2. ZIRABEV [Suspect]
     Active Substance: BEVACIZUMAB-BVZR
     Indication: Astrocytoma
     Dosage: 20 COURSES
     Dates: start: 202110

REACTIONS (4)
  - Appendicitis perforated [Unknown]
  - Neoplasm progression [Unknown]
  - Off label use [Unknown]
  - Neoplasm recurrence [Unknown]

NARRATIVE: CASE EVENT DATE: 20230217
